FAERS Safety Report 8195433-4 (Version None)
Quarter: 2012Q1

REPORT INFORMATION
  Report Type: 
  Country: None (occurrence: None)
  Receive Date: 20120308
  Receipt Date: 20120301
  Transmission Date: 20120608
  Serious: Yes (Life-Threatening, Hospitalization, Other)
  Sender: FDA-Public Use
  Company Number: PHHO1995BE02623

PATIENT
  Sex: Male
  Weight: 68 kg

DRUGS (3)
  1. DIGOXIN [Suspect]
     Dosage: UNSPECIFIED
  2. MEDROL [Suspect]
     Route: 048
     Dates: start: 19950917
  3. NEORAL [Suspect]
     Route: 048
     Dates: start: 19950808

REACTIONS (8)
  - CYTOMEGALOVIRUS INFECTION [None]
  - PNEUMONIA [None]
  - DIARRHOEA [None]
  - DRUG LEVEL INCREASED [None]
  - DEHYDRATION [None]
  - NEUROLOGICAL SYMPTOM [None]
  - RENAL FAILURE ACUTE [None]
  - DUODENAL ULCER [None]
